FAERS Safety Report 5398766-X (Version None)
Quarter: 2007Q3

REPORT INFORMATION
  Report Type: 
  Country: None (occurrence: None)
  Receive Date: 20070726
  Receipt Date: 20060607
  Transmission Date: 20080115
  Serious: No
  Sender: FDA-Public Use
  Company Number: US-AMGEN-KDL182163

PATIENT
  Sex: Female

DRUGS (8)
  1. EPOGEN [Suspect]
     Indication: RENAL FAILURE CHRONIC
     Dates: start: 20030701
  2. PROCRIT [Concomitant]
  3. SYNTHROID [Concomitant]
  4. LYRICA [Concomitant]
  5. IRON [Concomitant]
     Route: 048
  6. HECTORAL [Concomitant]
  7. NEXIUM [Concomitant]
  8. SODIUM BICARBONATE [Concomitant]

REACTIONS (1)
  - THERAPEUTIC RESPONSE DECREASED [None]
